FAERS Safety Report 5251526-2 (Version None)
Quarter: 2007Q1

REPORT INFORMATION
  Report Type: 
  Country: None (occurrence: None)
  Receive Date: 20070228
  Receipt Date: 20060523
  Transmission Date: 20070707
  Serious: No
  Sender: FDA-Public Use
  Company Number: US-GLAXOSMITHKLINE-A0606660A

PATIENT
  Age: 42 Year
  Sex: Female

DRUGS (3)
  1. LAMICTAL [Suspect]
     Indication: BIPOLAR DISORDER
     Dosage: 100MG PER DAY
     Route: 048
     Dates: start: 20060401, end: 20060401
  2. DEPAKOTE [Suspect]
     Dates: start: 20060101, end: 20060101
  3. NO CONCURRENT MEDICATION [Concomitant]

REACTIONS (8)
  - ABNORMAL DREAMS [None]
  - DEPRESSION [None]
  - DISABILITY [None]
  - DRUG INEFFECTIVE [None]
  - DYSPHONIA [None]
  - FEELING ABNORMAL [None]
  - SLEEP DISORDER [None]
  - TREMOR [None]
